FAERS Safety Report 5447407-1 (Version None)
Quarter: 2007Q3

REPORT INFORMATION
  Report Type: 
  Country: None (occurrence: None)
  Receive Date: 20070910
  Receipt Date: 20070830
  Transmission Date: 20080115
  Serious: Yes (Other)
  Sender: FDA-Public Use
  Company Number: IT-AMGEN-UK241420

PATIENT
  Sex: Female

DRUGS (13)
  1. ARANESP [Suspect]
     Indication: RENAL FAILURE CHRONIC
     Route: 042
     Dates: start: 20050627
  2. CARNITENE [Concomitant]
     Route: 042
     Dates: start: 20051010, end: 20070830
  3. ZEMPLAR [Concomitant]
     Route: 042
     Dates: start: 20070815, end: 20070830
  4. LEDERFOLIN [Concomitant]
     Route: 042
     Dates: start: 20050627, end: 20070830
  5. LANSOX [Concomitant]
     Route: 048
     Dates: start: 20051003, end: 20070830
  6. TRIATEC [Concomitant]
     Route: 048
     Dates: start: 20050716, end: 20070830
  7. CARDURA [Concomitant]
     Route: 048
     Dates: start: 20050716, end: 20070830
  8. PARLODEL [Concomitant]
     Route: 048
     Dates: start: 20051214, end: 20070830
  9. FERROUS GLUCONATE [Concomitant]
     Route: 042
     Dates: start: 20060908, end: 20070830
  10. TICLODIPINE [Concomitant]
     Route: 048
     Dates: start: 20050716, end: 20070830
  11. ADALAT [Concomitant]
     Route: 048
     Dates: start: 20050808, end: 20070830
  12. EPARGRISEOVIT [Concomitant]
     Route: 042
     Dates: start: 20050822, end: 20070830
  13. BROMOCRIPTINE MESYLATE [Concomitant]
     Route: 048
     Dates: start: 20051214, end: 20070830

REACTIONS (1)
  - APLASIA PURE RED CELL [None]
